FAERS Safety Report 6836076-1 (Version None)
Quarter: 2010Q3

REPORT INFORMATION
  Report Type: 
  Country: None (occurrence: None)
  Receive Date: 20100713
  Receipt Date: 20100705
  Transmission Date: 20110219
  Serious: Yes (Death, Other)
  Sender: FDA-Public Use
  Company Number: CA-ROCHE-620339

PATIENT
  Sex: Female
  Weight: 78 kg

DRUGS (3)
  1. BEVACIZUMAB [Suspect]
     Indication: GLIOBLASTOMA
     Dosage: FREQUENCY:EVERY TWO WEEKS, FORM: INFUSION
     Route: 042
     Dates: start: 20090223, end: 20100625
  2. PROCARBAZINE HYDROCHLORIDE [Concomitant]
     Route: 048
     Dates: start: 20090220, end: 20090224
  3. POTASSIUM [Concomitant]
     Route: 048
     Dates: start: 20080101

REACTIONS (8)
  - ASTHENIA [None]
  - DECREASED APPETITE [None]
  - DISEASE PROGRESSION [None]
  - HYPERTENSION [None]
  - HYPOKALAEMIA [None]
  - LETHARGY [None]
  - NAUSEA [None]
  - VOMITING [None]
